FAERS Safety Report 17668073 (Version 2)
Quarter: 2020Q2

REPORT INFORMATION
  Report Type: Spontaneous
  Country: IE (occurrence: IE)
  Receive Date: 20200414
  Receipt Date: 20200417
  Transmission Date: 20200713
  Serious: No
  Sender: FDA-Public Use
  Company Number: IE-ACTELION-A-US2020-204247

PATIENT
  Age: 55 Year
  Sex: Male

DRUGS (1)
  1. VENTAVIS [Suspect]
     Active Substance: ILOPROST
     Indication: CORONAVIRUS INFECTION
     Dosage: UNK
     Route: 055
     Dates: start: 20200403

REACTIONS (3)
  - Off label use [Not Recovered/Not Resolved]
  - Drug administered in wrong device [Not Recovered/Not Resolved]
  - Product use in unapproved indication [Not Recovered/Not Resolved]
